FAERS Safety Report 22351020 (Version 1)
Quarter: 2023Q2

REPORT INFORMATION
  Report Type: Spontaneous
  Country: BR (occurrence: BR)
  Receive Date: 20230522
  Receipt Date: 20230522
  Transmission Date: 20230722
  Serious: Yes (Hospitalization)
  Sender: FDA-Public Use
  Company Number: BR-BoehringerIngelheim-2023-BI-237592

PATIENT
  Age: 50 Year
  Sex: Female
  Weight: 91 kg

DRUGS (7)
  1. FENOTEROL HYDROBROMIDE\IPRATROPIUM BROMIDE [Suspect]
     Active Substance: FENOTEROL HYDROBROMIDE\IPRATROPIUM BROMIDE
     Indication: Asthma
     Dosage: DUOVENT N, AEROSOL, 10 TO 12 PUFFS
     Route: 055
     Dates: start: 2007
  2. ATROVENT [Suspect]
     Active Substance: IPRATROPIUM BROMIDE
     Indication: Asthma
     Route: 055
  3. BEROTEC [Suspect]
     Active Substance: FENOTEROL HYDROBROMIDE
     Indication: Asthma
     Dosage: BEROTEC AEROSOL
     Route: 055
  4. BUDESONIDE\FORMOTEROL FUMARATE [Suspect]
     Active Substance: BUDESONIDE\FORMOTEROL FUMARATE
     Indication: Product used for unknown indication
  5. ALBUTEROL [Suspect]
     Active Substance: ALBUTEROL
     Indication: Product used for unknown indication
  6. Tribow [Concomitant]
     Indication: Chronic obstructive pulmonary disease
     Dosage: 2 PUFF
     Route: 055
  7. OXYGEN [Concomitant]
     Active Substance: OXYGEN
     Indication: Product used for unknown indication
     Dosage: TO SLEEP
     Dates: start: 202203

REACTIONS (9)
  - COVID-19 [Recovered/Resolved]
  - Tremor [Unknown]
  - Swelling [Unknown]
  - Fatigue [Unknown]
  - Drug ineffective [Unknown]
  - Fibromyalgia [Unknown]
  - Glossitis [Unknown]
  - Weight increased [Unknown]
  - Intentional product use issue [Unknown]

NARRATIVE: CASE EVENT DATE: 20070101
